FAERS Safety Report 5846010-9 (Version None)
Quarter: 2008Q3

REPORT INFORMATION
  Report Type: 
  Country: None (occurrence: None)
  Receive Date: 20080814
  Receipt Date: 20080805
  Transmission Date: 20090109
  Serious: Yes (Life-Threatening, Congenital Anomaly, Other)
  Sender: FDA-Public Use
  Company Number: US-PFIZER INC-2007095324

PATIENT
  Sex: Male

DRUGS (4)
  1. ZOLOFT [Suspect]
     Indication: DEPRESSION
     Dosage: TEXT:100 AND 150 MG
     Route: 064
  2. ZOLOFT [Suspect]
     Indication: ANXIETY
  3. ZOLOFT [Suspect]
     Indication: OBSESSIVE-COMPULSIVE DISORDER
  4. TYLENOL [Concomitant]

REACTIONS (13)
  - ASTHMA [None]
  - COGNITIVE DISORDER [None]
  - COLLAPSE OF LUNG [None]
  - DEVELOPMENTAL DELAY [None]
  - DRUG EXPOSURE DURING PREGNANCY [None]
  - FAILURE TO THRIVE [None]
  - FEEDING DISORDER NEONATAL [None]
  - FOOD ALLERGY [None]
  - GASTRIC DISORDER [None]
  - NEONATAL RESPIRATORY DISTRESS SYNDROME [None]
  - PERSISTENT FOETAL CIRCULATION [None]
  - TACHYCARDIA [None]
  - WEIGHT DECREASED [None]
